FAERS Safety Report 5592300-7 (Version None)
Quarter: 2007Q4

REPORT INFORMATION
  Report Type: 
  Country: None (occurrence: None)
  Receive Date: 20071217
  Receipt Date: 20070829
  Transmission Date: 20080405
  Serious: Yes (Hospitalization)
  Sender: FDA-Public Use
  Company Number: BDI-010130

PATIENT
  Age: 23 Year
  Sex: Female

DRUGS (2)
  1. MULTIHANCE [Suspect]
     Indication: MIGRAINE
     Dosage: 20 ML ONCE IV
     Route: 042
     Dates: start: 20070829, end: 20070829
  2. MULTIHANCE [Suspect]
     Indication: NUCLEAR MAGNETIC RESONANCE IMAGING BRAIN
     Dosage: 20 ML ONCE IV
     Route: 042
     Dates: start: 20070829, end: 20070829

REACTIONS (6)
  - CONVULSION [None]
  - EYE SWELLING [None]
  - LETHARGY [None]
  - THROAT IRRITATION [None]
  - URTICARIA [None]
  - VISION BLURRED [None]
